FAERS Safety Report 22635195 (Version 1)
Quarter: 2023Q2

REPORT INFORMATION
  Report Type: Spontaneous
  Country: CN (occurrence: CN)
  Receive Date: 20230623
  Receipt Date: 20230623
  Transmission Date: 20230721
  Serious: Yes (Other)
  Sender: FDA-Public Use
  Company Number: CN-SUN PHARMACEUTICAL INDUSTRIES LTD-2023R1-396214

PATIENT
  Age: 58 Year
  Sex: Male

DRUGS (8)
  1. CAPECITABINE [Suspect]
     Active Substance: CAPECITABINE
     Indication: Adenocarcinoma
     Dosage: 1.5 GRAM, BID, ON DAYS 1-14 Q3W
     Route: 048
     Dates: start: 201902, end: 201907
  2. CAPECITABINE [Suspect]
     Active Substance: CAPECITABINE
     Indication: Metastases to lung
  3. FOLIC ACID [Suspect]
     Active Substance: FOLIC ACID
     Indication: Adenocarcinoma
     Dosage: 0.6 GRAM, ON DAY 1
     Route: 042
     Dates: end: 201808
  4. FOLIC ACID [Suspect]
     Active Substance: FOLIC ACID
     Indication: Metastases to lung
  5. OXALIPLATIN [Suspect]
     Active Substance: OXALIPLATIN
     Indication: Adenocarcinoma
     Dosage: 165 MILLIGRAM, ON DAY 1
     Route: 042
     Dates: end: 201808
  6. OXALIPLATIN [Suspect]
     Active Substance: OXALIPLATIN
     Indication: Metastases to lung
     Dosage: 200 MILLIGRAM ON DAY 1
     Route: 042
     Dates: start: 201902, end: 201907
  7. FLUOROURACIL [Suspect]
     Active Substance: FLUOROURACIL
     Indication: Adenocarcinoma
     Dosage: 0.75 GRAM ON DAY 1
     Route: 042
  8. FLUOROURACIL [Suspect]
     Active Substance: FLUOROURACIL
     Indication: Metastases to lung
     Dosage: 4.5 GRAM 46 H Q2W
     Route: 042
     Dates: end: 201808

REACTIONS (1)
  - Drug ineffective [Unknown]
